FAERS Safety Report 16761028 (Version 1)
Quarter: 2019Q3

REPORT INFORMATION
  Report Type: Report from Study
  Country: US (occurrence: US)
  Receive Date: 20190830
  Receipt Date: 20190830
  Transmission Date: 20191005
  Serious: Yes (Other)
  Sender: FDA-Public Use
  Company Number: US-ROCHE-2385343

PATIENT
  Age: 49 Year
  Sex: Female
  Weight: 59.02 kg

DRUGS (2)
  1. OCREVUS [Suspect]
     Active Substance: OCRELIZUMAB
     Indication: MULTIPLE SCLEROSIS
     Route: 042
     Dates: start: 2018
  2. OCREVUS [Suspect]
     Active Substance: OCRELIZUMAB
     Indication: RELAPSING-REMITTING MULTIPLE SCLEROSIS
     Dosage: 1ST FULL INFUSION (600 MG) ON 4 SEP 2019
     Route: 042
     Dates: start: 201903, end: 201903

REACTIONS (3)
  - Fatigue [Not Recovered/Not Resolved]
  - Genital herpes [Not Recovered/Not Resolved]
  - Lichen sclerosus [Unknown]

NARRATIVE: CASE EVENT DATE: 2018
